FAERS Safety Report 11131543 (Version 2)
Quarter: 2015Q3

REPORT INFORMATION
  Report Type: Spontaneous
  Country: US (occurrence: US)
  Receive Date: 20150522
  Receipt Date: 20150716
  Transmission Date: 20151125
  Serious: Yes (Other)
  Sender: FDA-Public Use
  Company Number: US-PFIZER INC-2015168234

PATIENT
  Age: 90 Year
  Sex: Male
  Weight: 73 kg

DRUGS (3)
  1. LATANOPROST. [Suspect]
     Active Substance: LATANOPROST
     Indication: GLAUCOMA
     Dosage: ONE DROP IN EACH EYE EVERY NIGHT
  2. TRAVATAN [Suspect]
     Active Substance: TRAVOPROST
     Indication: GLAUCOMA
     Dosage: ONE DROP IN EACH EYE EVERY NIGHT
  3. LUMIGAN [Suspect]
     Active Substance: BIMATOPROST
     Indication: GLAUCOMA
     Dosage: ONE DROP IN EACH EYE EVERY NIGHT

REACTIONS (4)
  - Eye burns [Unknown]
  - Balance disorder [Not Recovered/Not Resolved]
  - Cerebrovascular accident [Unknown]
  - Drug ineffective [Unknown]

NARRATIVE: CASE EVENT DATE: 2014
